FAERS Safety Report 8850306 (Version 1)
Quarter: 2012Q4

REPORT INFORMATION
  Report Type: 
  Country: CA (occurrence: CA)
  Receive Date: 20121019
  Receipt Date: 20121019
  Transmission Date: 20130627
  Serious: Yes (Hospitalization)
  Sender: FDA-Public Use
  Company Number: PHHY2012CA091636

PATIENT
  Age: 39 Year
  Sex: Female

DRUGS (9)
  1. NARATRIPTAN [Suspect]
  2. SERTRALINE [Suspect]
  3. VENLAFAXINE [Suspect]
  4. METHADONE [Suspect]
  5. QUETIAPINE [Concomitant]
  6. BACLOFEN [Concomitant]
  7. ATORVASTATIN [Concomitant]
  8. TRIAMTERENE AND HYDROCHLOROTHIAZID ^HARRIS^ [Concomitant]
  9. TOPIRAMATE [Concomitant]

REACTIONS (12)
  - Cerebral vasoconstriction [Recovered/Resolved]
  - Headache [Recovered/Resolved]
  - Nausea [Recovered/Resolved]
  - Vomiting [Recovered/Resolved]
  - Photophobia [Recovered/Resolved]
  - Phonophobia [Recovered/Resolved]
  - Agitation [Recovered/Resolved]
  - Confusional state [Recovered/Resolved]
  - Disorientation [Recovered/Resolved]
  - Incoherent [Recovered/Resolved]
  - Consciousness fluctuating [Recovered/Resolved]
  - Subarachnoid haemorrhage [Recovered/Resolved]
